FAERS Safety Report 15264636 (Version 1)
Quarter: 2018Q3

REPORT INFORMATION
  Report Type: Spontaneous
  Country: US (occurrence: US)
  Receive Date: 20180723
  Receipt Date: 20180723
  Transmission Date: 20181010
  Serious: Yes (Death)
  Sender: FDA-Public Use
  Company Number: None

PATIENT
  Sex: Male

DRUGS (4)
  1. PANTOPRAZOLE 40MG [Concomitant]
     Active Substance: PANTOPRAZOLE SODIUM
  2. LISINOPRIL 10MG [Concomitant]
     Active Substance: LISINOPRIL
  3. CAPECITABINE. [Suspect]
     Active Substance: CAPECITABINE
     Indication: COLON CANCER
     Dosage: ?          OTHER FREQUENCY:BID X 14/21 DAYS;?
     Route: 048
     Dates: start: 20180117
  4. FENOFIBRATE 160MG [Concomitant]

REACTIONS (1)
  - Death [None]
